FAERS Safety Report 4931478-2 (Version None)
Quarter: 2006Q1

REPORT INFORMATION
  Report Type: 
  Country: None (occurrence: None)
  Receive Date: 20060303
  Receipt Date: 20060217
  Transmission Date: 20060701
  Serious: Yes (Death)
  Sender: FDA-Public Use
  Company Number: JP-JNJFOC-20060206384

PATIENT
  Sex: Female

DRUGS (4)
  1. DOXIL [Suspect]
     Indication: MULTIPLE MYELOMA
     Route: 042
  2. VINCRISTINE [Suspect]
     Indication: MULTIPLE MYELOMA
  3. DEXAMETHASONE [Suspect]
     Indication: MULTIPLE MYELOMA
  4. BISPHOSPHONATE [Concomitant]

REACTIONS (3)
  - MULTIPLE MYELOMA [None]
  - PNEUMONIA [None]
  - SEPSIS [None]
